FAERS Safety Report 10423493 (Version 1)
Quarter: 2014Q3

REPORT INFORMATION
  Report Type: Report from Study
  Country: AR (occurrence: AR)
  Receive Date: 20140902
  Receipt Date: 20140902
  Transmission Date: 20150326
  Serious: Yes (Hospitalization)
  Sender: FDA-Public Use
  Company Number: AR-US-EMD SERONO, INC.-7316755

PATIENT
  Sex: Female

DRUGS (1)
  1. REBIF [Suspect]
     Active Substance: INTERFERON BETA-1A
     Indication: MULTIPLE SCLEROSIS
     Dates: start: 20121029

REACTIONS (4)
  - Feeling abnormal [Unknown]
  - Speech disorder [Unknown]
  - Loss of consciousness [Recovering/Resolving]
  - Pneumonia [Recovering/Resolving]
